FAERS Safety Report 5386594-0 (Version None)
Quarter: 2007Q3

REPORT INFORMATION
  Report Type: 
  Country: None (occurrence: None)
  Receive Date: 20070713
  Receipt Date: 20070706
  Transmission Date: 20080115
  Serious: Yes (Hospitalization)
  Sender: FDA-Public Use
  Company Number: B0478840A

PATIENT
  Age: 8 Year
  Sex: Male

DRUGS (1)
  1. ZINACEF [Suspect]
     Indication: DRUG USE FOR UNKNOWN INDICATION
     Route: 030
     Dates: start: 20070528, end: 20070528

REACTIONS (8)
  - BREATH SOUNDS ABNORMAL [None]
  - CONJUNCTIVITIS [None]
  - DYSPNOEA [None]
  - GENERALISED ERYTHEMA [None]
  - OEDEMA PERIPHERAL [None]
  - RALES [None]
  - VISUAL DISTURBANCE [None]
  - VOMITING [None]
